FAERS Safety Report 4585447-5 (Version None)
Quarter: 2005Q1

REPORT INFORMATION
  Report Type: 
  Country: None (occurrence: None)
  Receive Date: 20050214
  Receipt Date: 20050202
  Transmission Date: 20050727
  Serious: Yes (Other)
  Sender: FDA-Public Use
  Company Number: 2005018753

PATIENT
  Age: 64 Year
  Sex: Female
  Weight: 67 kg

DRUGS (2)
  1. ESTRADIOL [Suspect]
     Indication: ILL-DEFINED DISORDER
     Dosage: 7.5 MCG (7.5 MCG, 7.5 UG, VAGINAL
     Route: 067
     Dates: end: 20050101
  2. TAMOXIFEN (TAMOXIFEN) [Concomitant]

REACTIONS (4)
  - DEVICE FAILURE [None]
  - FEELING ABNORMAL [None]
  - PHARMACEUTICAL PRODUCT COMPLAINT [None]
  - UNEVALUABLE EVENT [None]
